FAERS Safety Report 7101049-0 (Version None)
Quarter: 2010Q4

REPORT INFORMATION
  Report Type: 
  Country: None (occurrence: None)
  Receive Date: 20101113
  Receipt Date: 20100422
  Transmission Date: 20110411
  Serious: No
  Sender: FDA-Public Use
  Company Number: US-ALLERGAN-1005284US

PATIENT
  Sex: Female

DRUGS (3)
  1. BOTOX COSMETIC [Suspect]
     Indication: SKIN WRINKLING
     Dosage: 21 UNITS, SINGLE
     Route: 030
     Dates: start: 20100222, end: 20100222
  2. ALPRAZOLAM [Concomitant]
  3. WELLBUTRIN [Concomitant]

REACTIONS (2)
  - MUSCLE SPASMS [None]
  - THERAPEUTIC RESPONSE DECREASED [None]
